FAERS Safety Report 4437713-1 (Version None)
Quarter: 2004Q3

REPORT INFORMATION
  Report Type: 
  Country: None (occurrence: None)
  Receive Date: 20040831
  Receipt Date: 20031028
  Transmission Date: 20050211
  Serious: No
  Sender: FDA-Public Use
  Company Number: US-GLAXOSMITHKLINE-A0431618A

PATIENT
  Age: 56 Year
  Sex: Female

DRUGS (1)
  1. ZOVIRAX [Suspect]
     Route: 061
     Dates: start: 20031024

REACTIONS (1)
  - DRUG INEFFECTIVE [None]
